FAERS Safety Report 9782047 (Version 2)
Quarter: 2014Q1

REPORT INFORMATION
  Report Type: Spontaneous
  Country: JP (occurrence: JP)
  Receive Date: 20131226
  Receipt Date: 20140130
  Transmission Date: 20141002
  Serious: Yes (Other)
  Sender: FDA-Public Use
  Company Number: JP-ROCHE-1322681

PATIENT
  Age: 43 Year
  Sex: Male
  Weight: 70 kg

DRUGS (4)
  1. AVASTIN [Suspect]
     Indication: ANAPLASTIC ASTROCYTOMA
     Dosage: MOST RECENT DOSE WAS ON 16/DEC/2013, COMPLETED TREATMENT CYCLE NUMBER: 7
     Route: 041
     Dates: start: 20130815, end: 20131111
  2. GABAPEN [Suspect]
     Indication: EPILEPSY
     Route: 048
     Dates: start: 2012
  3. DEPAKENE-R [Suspect]
     Indication: EPILEPSY
     Route: 048
     Dates: start: 2011
  4. LYRICA [Concomitant]
     Indication: ANALGESIC THERAPY
     Route: 048
     Dates: start: 2012

REACTIONS (4)
  - Skin ulcer [Recovering/Resolving]
  - Pain [Recovering/Resolving]
  - Palmar-plantar erythrodysaesthesia syndrome [Recovering/Resolving]
  - Rash [Recovering/Resolving]
